FAERS Safety Report 21460921 (Version 1)
Quarter: 2022Q4

REPORT INFORMATION
  Report Type: Report from Study
  Country: US (occurrence: US)
  Receive Date: 20221015
  Receipt Date: 20221015
  Transmission Date: 20230112
  Serious: No
  Sender: FDA-Public Use
  Company Number: US-ABBVIE-22K-163-4396021-00

PATIENT
  Sex: Female

DRUGS (1)
  1. IMBRUVICA [Suspect]
     Active Substance: IBRUTINIB
     Indication: Chronic lymphocytic leukaemia
     Route: 048

REACTIONS (6)
  - Osteoporosis [Unknown]
  - Sinus congestion [Not Recovered/Not Resolved]
  - Hair disorder [Unknown]
  - Sinusitis [Not Recovered/Not Resolved]
  - Onychoclasis [Unknown]
  - Nail disorder [Unknown]

NARRATIVE: CASE EVENT DATE: 20220101
